FAERS Safety Report 8841320 (Version 2)
Quarter: 2012Q4

REPORT INFORMATION
  Report Type: Report from Study
  Country: IT (occurrence: IT)
  Receive Date: 20121015
  Receipt Date: 20121018
  Transmission Date: 20130627
  Serious: Yes (Death)
  Sender: FDA-Public Use
  Company Number: IT-CELGENEUS-083-22393-12090834

PATIENT
  Sex: Female
  Weight: 57 kg

DRUGS (8)
  1. ISTODAX [Suspect]
     Indication: T-CELL LYMPHOMA
     Route: 065
     Dates: start: 20120717
  2. ISTODAX [Suspect]
     Route: 065
     Dates: start: 20120814
  3. GEMCITABINE [Concomitant]
     Indication: T-CELL LYMPHOMA
     Route: 065
     Dates: start: 20120814
  4. CITALOPRAM [Concomitant]
     Indication: DEPRESSION
     Route: 048
     Dates: start: 20111229
  5. ALLOPURINOL [Concomitant]
     Indication: PROPHYLAXIS
     Route: 065
     Dates: start: 20120330
  6. DEXAMETHASONE [Concomitant]
     Indication: REACTION UNEVALUABLE
     Route: 048
     Dates: start: 20120904
  7. OMEPRAZOLE [Concomitant]
     Indication: GASTRITIS PROPHYLAXIS
     Route: 048
     Dates: start: 20120906
  8. SULFAMETAZOLOTRIMETOPRIM [Concomitant]
     Indication: UROSEPSIS
     Dosage: 320 Milligram
     Route: 048
     Dates: start: 20120906, end: 20120913

REACTIONS (1)
  - T-cell lymphoma [Fatal]
